FAERS Safety Report 8337466-0 (Version None)
Quarter: 2012Q2

REPORT INFORMATION
  Report Type: 
  Country: None (occurrence: None)
  Receive Date: 20120504
  Receipt Date: 20120502
  Transmission Date: 20120825
  Serious: Yes (Hospitalization)
  Sender: FDA-Public Use
  Company Number: IT-PFIZER INC-2012091166

PATIENT
  Age: 47 Year
  Sex: Male

DRUGS (2)
  1. TORISEL [Suspect]
     Indication: RENAL NEOPLASM
     Dosage: 3.5
     Route: 042
     Dates: start: 20120113, end: 20120330
  2. EPREX [Concomitant]
     Dosage: 5714
     Route: 058
     Dates: start: 20120224, end: 20120331

REACTIONS (2)
  - FACE OEDEMA [None]
  - PHARYNGEAL OEDEMA [None]
